FAERS Safety Report 4569413-1 (Version None)
Quarter: 2005Q1

REPORT INFORMATION
  Report Type: 
  Country: None (occurrence: None)
  Receive Date: 20050203
  Receipt Date: 20050114
  Transmission Date: 20050727
  Serious: Yes (Other)
  Sender: FDA-Public Use
  Company Number: JP-JNJFOC-20041202819

PATIENT
  Sex: Female

DRUGS (4)
  1. ITRIZOLE [Suspect]
     Indication: WOUND INFECTION
     Route: 049
     Dates: start: 20041022, end: 20041023
  2. ITRIZOLE [Suspect]
     Indication: FUNGAL INFECTION
     Route: 049
     Dates: start: 20041022, end: 20041023
  3. LOXOPROFEN SODIUM [Concomitant]
     Indication: PAIN
     Route: 049
     Dates: start: 20041016, end: 20041022
  4. TEPRENONE [Concomitant]
     Indication: PAIN
     Route: 049
     Dates: start: 20041016, end: 20041022

REACTIONS (9)
  - DEAFNESS NEUROSENSORY [None]
  - DIZZINESS [None]
  - EAR DISCOMFORT [None]
  - ENDOLYMPHATIC HYDROPS [None]
  - HEADACHE [None]
  - MENIERE'S DISEASE [None]
  - SENSATION OF PRESSURE [None]
  - TINNITUS [None]
  - VERTIGO [None]
